FAERS Safety Report 8495617-1 (Version None)
Quarter: 2012Q2

REPORT INFORMATION
  Report Type: 
  Country: None (occurrence: None)
  Receive Date: 20120403
  Receipt Date: 20110120
  Transmission Date: 20120825
  Serious: Yes (Other)
  Sender: FDA-Public Use
  Company Number: 2-0111-07

PATIENT
  Sex: Female

DRUGS (2)
  1. LEVOTHYROXINE SODIUM [Concomitant]
  2. DERMA-SMOOTHE/FS SCALP OIL HILL DERMACEUTICALS [Suspect]
     Indication: PSORIASIS
     Dosage: TOPICAL
     Route: 061

REACTIONS (2)
  - ERYTHEMA [None]
  - SKIN DISORDER [None]
